FAERS Safety Report 23637862 (Version 1)
Quarter: 2024Q1

REPORT INFORMATION
  Report Type: Spontaneous
  Country: US (occurrence: US)
  Receive Date: 20240315
  Receipt Date: 20240315
  Transmission Date: 20240410
  Serious: Yes (Hospitalization, Other)
  Sender: FDA-Public Use
  Company Number: US-PRAXGEN-2024PPLIT00019

PATIENT
  Age: 3 Year
  Sex: Female

DRUGS (5)
  1. MELPHALAN [Suspect]
     Active Substance: MELPHALAN
     Indication: Retinoblastoma
     Dosage: FOR THE FIRST 7 CYCLES
     Route: 035
  2. MELPHALAN [Suspect]
     Active Substance: MELPHALAN
     Dosage: ONE CYCLE
     Route: 035
  3. MELPHALAN [Suspect]
     Active Substance: MELPHALAN
     Dosage: COMBINED WITH TOPOTECAN, ADDITIONAL 7 CYCLES
     Route: 035
  4. TOPOTECAN [Concomitant]
     Active Substance: TOPOTECAN HYDROCHLORIDE
     Dosage: COMBINED WITH MELPHALAN, 7 CYCLES
     Route: 035
  5. CARBOPLATIN [Concomitant]
     Active Substance: CARBOPLATIN
     Route: 013

REACTIONS (1)
  - Acquired pigmented retinopathy [Unknown]
